FAERS Safety Report 18113126 (Version 1)
Quarter: 2020Q3

REPORT INFORMATION
  Report Type: Spontaneous
  Country: GE (occurrence: GE)
  Receive Date: 20200805
  Receipt Date: 20200805
  Transmission Date: 20201103
  Serious: Yes (Hospitalization, Other)
  Sender: FDA-Public Use
  Company Number: GE-LUPIN PHARMACEUTICALS INC.-2020-04171

PATIENT
  Sex: Female

DRUGS (3)
  1. VALPROATE [Concomitant]
     Active Substance: VALPROIC ACID
     Indication: CLONIC CONVULSION
     Dosage: UNK
     Route: 065
  2. VITAMIN B6 [Concomitant]
     Active Substance: PYRIDOXINE HYDROCHLORIDE
     Indication: CLONIC CONVULSION
     Dosage: UNK
     Route: 065
  3. PHENYTOIN SODIUM. [Suspect]
     Active Substance: PHENYTOIN SODIUM
     Indication: CLONIC CONVULSION
     Dosage: UNK
     Route: 042

REACTIONS (2)
  - Rebound effect [Unknown]
  - Clonic convulsion [Recovered/Resolved]
